FAERS Safety Report 5240665-8 (Version None)
Quarter: 2007Q1

REPORT INFORMATION
  Report Type: 
  Country: None (occurrence: None)
  Receive Date: 20061208
  Receipt Date: 20051013
  Transmission Date: 20070707
  Serious: Yes (Other)
  Sender: FDA-Public Use
  Company Number: 2005UW15401

PATIENT
  Age: 68 Year
  Sex: Female
  Weight: 72.574 kg

DRUGS (9)
  1. CRESTOR [Suspect]
     Indication: BLOOD CHOLESTEROL INCREASED
     Dosage: 10 MG QD PO
     Route: 048
     Dates: start: 20040401
  2. ACTOS [Concomitant]
  3. COUMADIN [Concomitant]
  4. MULTI-VITAMINS [Concomitant]
  5. CALCIUM [Concomitant]
  6. LISINOPRIL [Concomitant]
  7. LANOXIN [Concomitant]
  8. ATENOLOL [Concomitant]
  9. METFORMIN HCL [Concomitant]

REACTIONS (2)
  - MYALGIA [None]
  - WEIGHT INCREASED [None]
